FAERS Safety Report 24019054 (Version 3)
Quarter: 2024Q3

REPORT INFORMATION
  Report Type: Spontaneous
  Country: DE (occurrence: DE)
  Receive Date: 20240627
  Receipt Date: 20240830
  Transmission Date: 20241017
  Serious: Yes (Death, Other)
  Sender: LABORATOIRES SERB
  Company Number: DE-SERB S.A.S.-2158602

PATIENT
  Age: 53 Year
  Sex: Male

DRUGS (1)
  1. CYANOKIT [Suspect]
     Active Substance: HYDROXOCOBALAMIN
     Indication: Chemical poisoning
     Route: 042
     Dates: start: 20230715, end: 20230715

REACTIONS (3)
  - Ventricular extrasystoles [Fatal]
  - Ventricular tachycardia [Fatal]
  - Ventricular tachycardia [Fatal]

NARRATIVE: CASE EVENT DATE: 20230716
